FAERS Safety Report 16870847 (Version 3)
Quarter: 2020Q4

REPORT INFORMATION
  Report Type: Report from Study
  Country: US (occurrence: US)
  Receive Date: 20190930
  Receipt Date: 20201229
  Transmission Date: 20210113
  Serious: Yes (Other)
  Sender: FDA-Public Use
  Company Number: US-CLOVIS ONCOLOGY-CLO-2019-001601

PATIENT
  Sex: Female

DRUGS (7)
  1. THERAGRAN                          /01824401/ [Concomitant]
     Indication: PRODUCT USED FOR UNKNOWN INDICATION
  2. MICARDIS [Concomitant]
     Active Substance: TELMISARTAN
     Indication: PRODUCT USED FOR UNKNOWN INDICATION
     Dosage: 80 MG, UNK
     Dates: start: 20191119
  3. RUBRACA [Suspect]
     Active Substance: RUCAPARIB CAMSYLATE
     Dosage: UNK
     Route: 048
     Dates: start: 20191223, end: 2020
  4. HYDROCORTISONE. [Concomitant]
     Active Substance: HYDROCORTISONE
     Indication: PRODUCT USED FOR UNKNOWN INDICATION
     Dosage: 1 %, UNK
     Route: 061
     Dates: start: 20190712
  5. NORVASC [Concomitant]
     Active Substance: AMLODIPINE BESYLATE
     Indication: PRODUCT USED FOR UNKNOWN INDICATION
     Dosage: 5 MG, UNK
     Dates: start: 20191218
  6. RUBRACA [Suspect]
     Active Substance: RUCAPARIB CAMSYLATE
     Indication: OVARIAN CANCER
     Dosage: 600 MG, BID
     Route: 048
     Dates: start: 201907, end: 2020
  7. CURCUMIN [Concomitant]
     Active Substance: CURCUMIN
     Indication: PRODUCT USED FOR UNKNOWN INDICATION
     Dosage: 1100 MG, UNK
     Dates: start: 20190409

REACTIONS (12)
  - Palpitations [Unknown]
  - Malignant neoplasm progression [Not Recovered/Not Resolved]
  - Blood pressure increased [Not Recovered/Not Resolved]
  - Haemorrhoids [Unknown]
  - Nausea [Recovering/Resolving]
  - Constipation [Unknown]
  - Arthritis [Recovering/Resolving]
  - Headache [Unknown]
  - Abdominal distension [Recovered/Resolved]
  - Chest pain [Recovering/Resolving]
  - Dizziness [Recovering/Resolving]
  - Vomiting [Unknown]

NARRATIVE: CASE EVENT DATE: 2019
